FAERS Safety Report 18250504 (Version 2)
Quarter: 2020Q4

REPORT INFORMATION
  Report Type: Spontaneous
  Country: US (occurrence: US)
  Receive Date: 20200910
  Receipt Date: 20201028
  Transmission Date: 20210113
  Serious: No
  Sender: FDA-Public Use
  Company Number: US-SA-2020SA240489

PATIENT

DRUGS (1)
  1. DUPIXENT [Suspect]
     Active Substance: DUPILUMAB
     Indication: PRODUCT USED FOR UNKNOWN INDICATION
     Dosage: 300 MG, QOW
     Route: 058
     Dates: start: 20200824

REACTIONS (10)
  - Muscle spasms [Recovered/Resolved]
  - Sinus congestion [Unknown]
  - Periorbital swelling [Unknown]
  - Rash [Unknown]
  - Dry eye [Recovered/Resolved]
  - Condition aggravated [Recovered/Resolved]
  - Ocular hyperaemia [Unknown]
  - Eye discharge [Recovered/Resolved]
  - Nasal discharge discolouration [Unknown]
  - Sinus disorder [Unknown]

NARRATIVE: CASE EVENT DATE: 2020
